FAERS Safety Report 4357898-5 (Version None)
Quarter: 2004Q2

REPORT INFORMATION
  Report Type: 
  Country: None (occurrence: None)
  Receive Date: 20040513
  Receipt Date: 20040513
  Transmission Date: 20050107
  Serious: Yes (Death)
  Sender: FDA-Public Use
  Company Number: None

PATIENT
  Age: 66 Year
  Sex: Female
  Weight: 70.7611 kg

DRUGS (12)
  1. CAPECITABINE 500 MG TABLET/ ROCHE [Suspect]
     Indication: GALLBLADDER CANCER
     Dosage: 1000 MG BID PO
     Route: 048
     Dates: start: 20040331, end: 20040414
  2. CAPECITABINE 500 MG TABLET/ ROCHE [Suspect]
     Indication: METASTASIS
     Dosage: 1000 MG BID PO
     Route: 048
     Dates: start: 20040331, end: 20040414
  3. CAPECITABINE 500 MG TABLET/ ROCHE [Suspect]
     Indication: GALLBLADDER CANCER
     Dosage: 1000 MG BID PO
     Route: 048
     Dates: start: 20040421, end: 20040430
  4. CAPECITABINE 500 MG TABLET/ ROCHE [Suspect]
     Indication: METASTASIS
     Dosage: 1000 MG BID PO
     Route: 048
     Dates: start: 20040421, end: 20040430
  5. GEMCITABINE 35MG/ML ELI LILLY [Suspect]
     Indication: GALLBLADDER CANCER
     Dosage: 1750 MG D1 AND D8 IVPB
     Route: 042
     Dates: start: 20040331
  6. GEMCITABINE 35MG/ML ELI LILLY [Suspect]
     Indication: METASTASIS
     Dosage: 1750 MG D1 AND D8 IVPB
     Route: 042
     Dates: start: 20040331
  7. GEMCITABINE 35MG/ML ELI LILLY [Suspect]
     Indication: GALLBLADDER CANCER
     Dosage: 1750 MG D1 AND D8 IVPB
     Route: 042
     Dates: start: 20040407
  8. GEMCITABINE 35MG/ML ELI LILLY [Suspect]
     Indication: METASTASIS
     Dosage: 1750 MG D1 AND D8 IVPB
     Route: 042
     Dates: start: 20040407
  9. GEMCITABINE 35MG/ML ELI LILLY [Suspect]
     Indication: GALLBLADDER CANCER
     Dosage: 1750 MG D1 AND D8 IVPB
     Route: 042
     Dates: start: 20040421
  10. GEMCITABINE 35MG/ML ELI LILLY [Suspect]
     Indication: METASTASIS
     Dosage: 1750 MG D1 AND D8 IVPB
     Route: 042
     Dates: start: 20040421
  11. GEMCITABINE 35MG/ML ELI LILLY [Suspect]
     Indication: GALLBLADDER CANCER
     Dosage: 1750 MG D1 AND D8 IVPB
     Route: 042
     Dates: start: 20040427
  12. GEMCITABINE 35MG/ML ELI LILLY [Suspect]
     Indication: METASTASIS
     Dosage: 1750 MG D1 AND D8 IVPB
     Route: 042
     Dates: start: 20040427

REACTIONS (3)
  - CARDIO-RESPIRATORY ARREST [None]
  - COMA [None]
  - VENTRICULAR FIBRILLATION [None]
